FAERS Safety Report 8586315-4 (Version None)
Quarter: 2012Q3

REPORT INFORMATION
  Report Type: 
  Country: None (occurrence: None)
  Receive Date: 20120810
  Receipt Date: 20120803
  Transmission Date: 20120928
  Serious: Yes (Hospitalization)
  Sender: FDA-Public Use
  Company Number: JP-VERTEX PHARMACEUTICALS INC.-AE-2012-008819

PATIENT
  Sex: Male

DRUGS (6)
  1. TELAVIC (TELAPREVIR) [Suspect]
     Indication: HEPATITIS C
     Route: 048
     Dates: start: 20120605, end: 20120605
  2. TELAVIC (TELAPREVIR) [Suspect]
     Route: 048
     Dates: start: 20120611
  3. TELAVIC (TELAPREVIR) [Suspect]
     Route: 048
     Dates: start: 20120608, end: 20120610
  4. PEGINTERFERON ALFA-2A [Concomitant]
     Indication: HEPATITIS C
     Route: 058
     Dates: start: 20120605
  5. REBAMIPIDE [Concomitant]
     Route: 048
     Dates: start: 20120605
  6. RIBAVIRIN [Concomitant]
     Indication: HEPATITIS C
     Route: 048
     Dates: start: 20120605

REACTIONS (1)
  - RASH [None]
